FAERS Safety Report 4597952-6 (Version None)
Quarter: 2005Q1

REPORT INFORMATION
  Report Type: 
  Country: None (occurrence: None)
  Receive Date: 20050301
  Receipt Date: 20050216
  Transmission Date: 20050727
  Serious: Yes (Hospitalization)
  Sender: FDA-Public Use
  Company Number: 2005033034

PATIENT
  Sex: Male
  Weight: 72.5755 kg

DRUGS (5)
  1. ROGAINE [Suspect]
     Indication: ALOPECIA
     Dosage: 1 ML BID , TOPICAL
     Route: 061
  2. BUTALBITAL W/ASPIRIN, CAFFEINE (ACETYLSALICYLIC ACID, BUTALBITAL, CAFF [Concomitant]
  3. OXYCODONE HYDROCHLORIDE AND ACETAMINOPHEN [Concomitant]
  4. TERCONAZOLE [Concomitant]
  5. DECONGESTANTS AND ANTIALLERGICS [Concomitant]

REACTIONS (2)
  - HAIR TEXTURE ABNORMAL [None]
  - PNEUMONIA [None]
